FAERS Safety Report 17034584 (Version 1)
Quarter: 2019Q4

REPORT INFORMATION
  Report Type: Report from Study
  Country: CO (occurrence: CO)
  Receive Date: 20191115
  Receipt Date: 20191115
  Transmission Date: 20200122
  Serious: Yes (Other)
  Sender: FDA-Public Use
  Company Number: CO-ROCHE-2464297

PATIENT
  Sex: Female

DRUGS (1)
  1. OCREVUS [Suspect]
     Active Substance: OCRELIZUMAB
     Indication: MULTIPLE SCLEROSIS
     Route: 065

REACTIONS (13)
  - Cellulitis [Unknown]
  - Asthenia [Unknown]
  - Immunosuppression [Unknown]
  - Diplopia [Unknown]
  - Bladder disorder [Unknown]
  - Respiratory tract infection [Unknown]
  - Fatigue [Unknown]
  - Muscular weakness [Unknown]
  - Gait disturbance [Unknown]
  - Therapeutic response decreased [Unknown]
  - Tremor [Unknown]
  - Neuritis [Unknown]
  - Diarrhoea [Unknown]
